FAERS Safety Report 9836109 (Version 1)
Quarter: 2014Q1

REPORT INFORMATION
  Report Type: Report from Study
  Country: ZA (occurrence: ZA)
  Receive Date: 20140123
  Receipt Date: 20140123
  Transmission Date: 20141002
  Serious: Yes (Death)
  Sender: FDA-Public Use
  Company Number: ZA-AMGEN-ZAFNI2014004289

PATIENT
  Age: 65 Year
  Sex: Male

DRUGS (11)
  1. DARBEPOETIN ALFA [Suspect]
     Indication: NEPHROGENIC ANAEMIA
     Dosage: UNK
     Route: 065
  2. OMEPRAZOLE [Concomitant]
     Dosage: 20 MG, QD
  3. CALCIUM CARBONATE [Concomitant]
     Dosage: 420 MG, QD
  4. ASPIRIN [Concomitant]
     Dosage: 300 MG, QD
  5. LASIX                              /00032601/ [Concomitant]
     Dosage: 40 MG, QD
  6. CARDURA [Concomitant]
     Dosage: 4 MG, QD
  7. TITRALAC                           /00183701/ [Concomitant]
     Dosage: 2 DF, WITH MEAL
  8. ADALAT [Concomitant]
     Dosage: 60 MG, QD
  9. CARVEDILOL [Concomitant]
     Dosage: 6.25 MG, BID
  10. NORVASC [Concomitant]
     Dosage: 5 MG, QHS
  11. INSULIN [Concomitant]

REACTIONS (1)
  - Death [Fatal]
